FAERS Safety Report 4716925-3 (Version None)
Quarter: 2005Q3

REPORT INFORMATION
  Report Type: 
  Country: None (occurrence: None)
  Receive Date: 20050719
  Receipt Date: 20050708
  Transmission Date: 20060218
  Serious: Yes (Other)
  Sender: FDA-Public Use
  Company Number: JP-MERCK-0507USA01961

PATIENT
  Age: 6 Day
  Sex: Male
  Weight: 3 kg

DRUGS (1)
  1. INDOCIN I.V. [Suspect]
     Indication: PATENT DUCTUS ARTERIOSUS
     Route: 041

REACTIONS (2)
  - DRUG INEFFECTIVE [None]
  - PATENT DUCTUS ARTERIOSUS REPAIR [None]
